FAERS Safety Report 15831287 (Version 1)
Quarter: 2018Q4

REPORT INFORMATION
  Report Type: Spontaneous
  Country: US (occurrence: US)
  Receive Date: 20181219
  Receipt Date: 20181219
  Transmission Date: 20190205
  Serious: Yes (Hospitalization)
  Sender: FDA-Public Use
  Company Number: None

PATIENT
  Age: 58 Year
  Sex: Male
  Weight: 80.5 kg

DRUGS (17)
  1. MAVYRET [Suspect]
     Active Substance: GLECAPREVIR\PIBRENTASVIR
     Indication: HEPATITIS C
     Route: 048
     Dates: start: 20180514, end: 20180718
  2. LASIX [Concomitant]
     Active Substance: FUROSEMIDE
  3. AMLODIPINE [Concomitant]
     Active Substance: AMLODIPINE BESYLATE
  4. FLOMAX [Concomitant]
     Active Substance: TAMSULOSIN HYDROCHLORIDE
  5. VIBRAMYCIN [Concomitant]
     Active Substance: DOXYCYCLINE
  6. BREO ELLIPTA [Concomitant]
     Active Substance: FLUTICASONE FUROATE\VILANTEROL TRIFENATATE
  7. NEURONTIN [Concomitant]
     Active Substance: GABAPENTIN
  8. SYNTHROID [Concomitant]
     Active Substance: LEVOTHYROXINE SODIUM
  9. DOLOPHINE [Concomitant]
     Active Substance: METHADONE HYDROCHLORIDE
  10. ALBUTEROL HFA [Concomitant]
     Active Substance: ALBUTEROL SULFATE
  11. DUO-NEB [Concomitant]
  12. SENOKOT [Concomitant]
     Active Substance: SENNOSIDES
  13. MELATONIN [Concomitant]
     Active Substance: MELATONIN
  14. PREDNISONE. [Concomitant]
     Active Substance: PREDNISONE
  15. PEPCID [Concomitant]
     Active Substance: FAMOTIDINE
  16. SPIRIVA [Concomitant]
     Active Substance: TIOTROPIUM BROMIDE MONOHYDRATE
  17. THERAGRAN [Concomitant]
     Active Substance: VITAMINS

REACTIONS (3)
  - Dyspnoea [None]
  - White blood cell count increased [None]
  - Substance use [None]

NARRATIVE: CASE EVENT DATE: 20180716
